FAERS Safety Report 26152640 (Version 1)
Quarter: 2025Q4

REPORT INFORMATION
  Report Type: Spontaneous
  Country: US (occurrence: US)
  Receive Date: 20251214
  Receipt Date: 20251214
  Transmission Date: 20260119
  Serious: No
  Sender: ALEXION PHARMACEUTICALS
  Company Number: 202512NAM010437US

PATIENT
  Age: 78 Year
  Sex: Female

DRUGS (3)
  1. DALIRESP [Suspect]
     Active Substance: ROFLUMILAST
     Route: 065
  2. TRYPTYR [Suspect]
     Active Substance: ACOLTREMON
     Route: 065
  3. ATARAX [Suspect]
     Active Substance: HYDROXYZINE HYDROCHLORIDE

REACTIONS (3)
  - Skin burning sensation [Unknown]
  - Pruritus [Unknown]
  - Skin irritation [Unknown]
